FAERS Safety Report 8118782-4 (Version None)
Quarter: 2012Q1

REPORT INFORMATION
  Report Type: 
  Country: None (occurrence: None)
  Receive Date: 20120207
  Receipt Date: 20120131
  Transmission Date: 20120608
  Serious: Yes (Hospitalization)
  Sender: FDA-Public Use
  Company Number: US-BAYER-2012-011593

PATIENT
  Age: 28 Year
  Sex: Female

DRUGS (2)
  1. CELEXA [Concomitant]
     Dosage: 40 MG, QD
     Route: 048
     Dates: start: 20080716
  2. YAZ [Suspect]

REACTIONS (1)
  - PULMONARY EMBOLISM [None]
